FAERS Safety Report 13555906 (Version 1)
Quarter: 2017Q2

REPORT INFORMATION
  Report Type: Spontaneous
  Country: JP (occurrence: JP)
  Receive Date: 20170517
  Receipt Date: 20170517
  Transmission Date: 20170830
  Serious: Yes (Death, Other)
  Sender: FDA-Public Use
  Company Number: PHHY2017JP067240

PATIENT
  Age: 69 Year
  Sex: Male

DRUGS (4)
  1. CISPLATIN. [Suspect]
     Active Substance: CISPLATIN
     Dosage: 60 % DOSE BI-DAILY
     Route: 065
  2. IRINOTECAN [Suspect]
     Active Substance: IRINOTECAN
     Indication: GASTRIC CANCER
     Dosage: 80 % DOSE MONTHLY
     Route: 065
  3. CISPLATIN. [Suspect]
     Active Substance: CISPLATIN
     Indication: GASTRIC CANCER
     Dosage: 80 % DOSE
     Route: 065
  4. PACLITAXEL. [Suspect]
     Active Substance: PACLITAXEL
     Indication: GASTRIC CANCER
     Route: 065

REACTIONS (7)
  - Neuropathy peripheral [Unknown]
  - Pneumonia [Unknown]
  - Gastric cancer [Fatal]
  - Bone cancer [Unknown]
  - Sepsis [Unknown]
  - Metastases to central nervous system [Fatal]
  - Empyema [Fatal]
